FAERS Safety Report 13075305 (Version 1)
Quarter: 2016Q4

REPORT INFORMATION
  Report Type: Spontaneous
  Country: US (occurrence: US)
  Receive Date: 20161229
  Receipt Date: 20161229
  Transmission Date: 20170207
  Serious: Yes (Hospitalization, Disabling, Other)
  Sender: FDA-Public Use
  Company Number: None

PATIENT
  Sex: Male
  Weight: 77.18 kg

DRUGS (10)
  1. LAMENTAL [Concomitant]
  2. ADIVAN [Concomitant]
  3. TRASADONE [Concomitant]
  4. LISINAPRIL [Concomitant]
  5. METHADONE [Suspect]
     Active Substance: METHADONE HYDROCHLORIDE
     Indication: TEMPOROMANDIBULAR JOINT SYNDROME
     Dosage: 1/4 OF A BOTTLE ONCE IN MORNING ORALLY
     Route: 048
  6. METHADONE [Suspect]
     Active Substance: METHADONE HYDROCHLORIDE
     Indication: ANXIETY
     Dosage: 1/4 OF A BOTTLE ONCE IN MORNING ORALLY
     Route: 048
  7. METOPROLOL. [Concomitant]
     Active Substance: METOPROLOL
  8. METHADONE [Suspect]
     Active Substance: METHADONE HYDROCHLORIDE
     Indication: PAIN
     Dosage: 1/4 OF A BOTTLE ONCE IN MORNING ORALLY
     Route: 048
  9. METHADONE [Suspect]
     Active Substance: METHADONE HYDROCHLORIDE
     Indication: MYALGIA
     Dosage: 1/4 OF A BOTTLE ONCE IN MORNING ORALLY
     Route: 048
  10. CLONIDENE [Concomitant]

REACTIONS (9)
  - Skin burning sensation [None]
  - Eye irritation [None]
  - Feeling of body temperature change [None]
  - Drug ineffective [None]
  - Deafness [None]
  - Withdrawal syndrome [None]
  - Heart rate decreased [None]
  - Product taste abnormal [None]
  - Loss of consciousness [None]
